FAERS Safety Report 9817261 (Version 2)
Quarter: 2014Q1

REPORT INFORMATION
  Report Type: Report from Study
  Country: FR (occurrence: FR)
  Receive Date: 20140115
  Receipt Date: 20140131
  Transmission Date: 20141002
  Serious: Yes (Other)
  Sender: FDA-Public Use
  Company Number: FR-ROCHE-1332101

PATIENT
  Sex: Female

DRUGS (14)
  1. RITUXIMAB [Suspect]
     Indication: RHEUMATOID ARTHRITIS
     Dosage: DAY 1 AND 15 CYCLICAL
     Route: 042
     Dates: start: 20080612, end: 20100318
  2. CORTANCYL [Concomitant]
     Route: 065
     Dates: start: 20080612
  3. CORTANCYL [Concomitant]
     Route: 065
     Dates: start: 20080626
  4. CORTANCYL [Concomitant]
     Route: 065
     Dates: start: 20090706
  5. CORTANCYL [Concomitant]
     Route: 065
     Dates: start: 20090722
  6. CORTANCYL [Concomitant]
     Route: 065
     Dates: start: 20100303
  7. CORTANCYL [Concomitant]
     Route: 065
     Dates: start: 20100318
  8. CORTANCYL [Concomitant]
     Route: 065
     Dates: start: 20120221
  9. METHOTREXATE [Concomitant]
     Route: 065
     Dates: start: 20090706
  10. METHOTREXATE [Concomitant]
     Route: 065
     Dates: start: 20090722
  11. METHOTREXATE [Concomitant]
     Route: 065
     Dates: start: 20100303
  12. METHOTREXATE [Concomitant]
     Route: 065
     Dates: start: 20100318
  13. METHOTREXATE [Concomitant]
     Route: 065
     Dates: start: 20120221
  14. ORENCIA [Concomitant]
     Route: 065
     Dates: start: 20120221

REACTIONS (5)
  - Hepatocellular injury [Not Recovered/Not Resolved]
  - Hepatic steatosis [Not Recovered/Not Resolved]
  - Metabolic disorder [Not Recovered/Not Resolved]
  - Mouth ulceration [Not Recovered/Not Resolved]
  - Hypogammaglobulinaemia [Not Recovered/Not Resolved]
